FAERS Safety Report 5639671-0 (Version None)
Quarter: 2008Q1

REPORT INFORMATION
  Report Type: 
  Country: None (occurrence: None)
  Receive Date: 20080131
  Receipt Date: 20071102
  Transmission Date: 20080703
  Serious: Yes (Other)
  Sender: FDA-Public Use
  Company Number: 163-21880-07110267

PATIENT
  Age: 52 Year
  Sex: Male

DRUGS (9)
  1. REVLIMID [Suspect]
     Indication: MULTIPLE MYELOMA
     Dosage: X21D/28D, ORAL ; 15 MG, X21D/28D, ORAL ; 10 MG, 21D/28D, ORAL
     Route: 048
     Dates: start: 20070201, end: 20070301
  2. REVLIMID [Suspect]
     Indication: MULTIPLE MYELOMA
     Dosage: X21D/28D, ORAL ; 15 MG, X21D/28D, ORAL ; 10 MG, 21D/28D, ORAL
     Route: 048
     Dates: start: 20070405, end: 20070501
  3. REVLIMID [Suspect]
     Indication: MULTIPLE MYELOMA
     Dosage: X21D/28D, ORAL ; 15 MG, X21D/28D, ORAL ; 10 MG, 21D/28D, ORAL
     Route: 048
     Dates: start: 20070601, end: 20071008
  4. ASPIRIN [Concomitant]
  5. NEUPOGEN [Concomitant]
  6. PROCRIT [Concomitant]
  7. DOXYCYCLINE [Concomitant]
  8. COZAAR [Concomitant]
  9. DEXAMETHASONE TAB [Concomitant]

REACTIONS (3)
  - DEEP VEIN THROMBOSIS [None]
  - LEUKOPENIA [None]
  - THROMBOCYTOPENIA [None]
